FAERS Safety Report 8847175 (Version 2)
Quarter: 2012Q4

REPORT INFORMATION
  Report Type: 
  Country: IS (occurrence: IS)
  Receive Date: 20121018
  Receipt Date: 20121105
  Transmission Date: 20130627
  Serious: Yes (Other)
  Sender: FDA-Public Use
  Company Number: IS-JNJFOC-20121004849

PATIENT
  Age: 4 None
  Sex: Female

DRUGS (10)
  1. PALIPERIDONE [Suspect]
     Indication: MENTAL DISORDER
     Route: 048
  2. CLOZAPINE [Interacting]
     Indication: PRODUCT USED FOR UNKNOWN INDICATION
     Dosage: in the evening
     Route: 065
  3. SERTRALINE [Interacting]
     Indication: MENTAL DISORDER
     Route: 065
  4. LEVOMEPROMAZINE [Interacting]
     Indication: MENTAL DISORDER
     Route: 065
  5. ZOPICLONE [Interacting]
     Indication: MENTAL DISORDER
     Route: 065
  6. FEXOFENADINE [Interacting]
     Indication: HYPERSENSITIVITY
     Route: 065
  7. HYDROXYZINE [Interacting]
     Indication: HYPERSENSITIVITY
     Route: 065
  8. DOXAZOSIN [Interacting]
     Indication: CARDIOVASCULAR DISORDER
     Route: 065
  9. ENALAPRIL [Interacting]
     Indication: CARDIOVASCULAR DISORDER
     Route: 065
  10. HYDROCHLORTHIAZID [Interacting]
     Indication: CARDIOVASCULAR DISORDER
     Route: 065

REACTIONS (2)
  - Arrhythmia [Unknown]
  - Drug interaction [Unknown]
